FAERS Safety Report 6671240-6 (Version None)
Quarter: 2010Q2

REPORT INFORMATION
  Report Type: 
  Country: None (occurrence: None)
  Receive Date: 20100407
  Receipt Date: 20100324
  Transmission Date: 20101027
  Serious: No
  Sender: FDA-Public Use
  Company Number: US-B.I. PHARMACEUTICALS,INC./RIDGEFIELD-2010-BP-03414BP

PATIENT
  Sex: Female

DRUGS (3)
  1. CLONIDINE HCL [Suspect]
  2. COREG [Concomitant]
  3. BENICAR [Concomitant]

REACTIONS (3)
  - FALL [None]
  - GAIT DISTURBANCE [None]
  - INJURY [None]
